FAERS Safety Report 4347530-9 (Version None)
Quarter: 2004Q2

REPORT INFORMATION
  Report Type: 
  Country: None (occurrence: None)
  Receive Date: 20040427
  Receipt Date: 20040416
  Transmission Date: 20050107
  Serious: Yes (Hospitalization, Disabling, Other)
  Sender: FDA-Public Use
  Company Number: CH-BRISTOL-MYERS SQUIBB COMPANY-12562138

PATIENT
  Age: 44 Year
  Sex: Female

DRUGS (4)
  1. PLATINOL [Suspect]
     Indication: BREAST CANCER METASTATIC
     Dosage: INITIAL DOSE: 29-OCT-2003
     Route: 042
     Dates: start: 20040108, end: 20040108
  2. HERCEPTIN [Suspect]
     Indication: BREAST CANCER METASTATIC
     Dosage: INITIAL DOSE: 29-OCT-2003
     Route: 042
     Dates: start: 20040108, end: 20040108
  3. DEXAMETHASONE [Concomitant]
  4. TROPISETRON [Concomitant]

REACTIONS (1)
  - CHOLANGITIS SCLEROSING [None]
